FAERS Safety Report 8198094-3 (Version None)
Quarter: 2012Q1

REPORT INFORMATION
  Report Type: 
  Country: None (occurrence: None)
  Receive Date: 20120309
  Receipt Date: 20120117
  Transmission Date: 20120608
  Serious: No
  Sender: FDA-Public Use
  Company Number: US-AMGEN-USASP2012003163

PATIENT
  Sex: Male

DRUGS (3)
  1. ELIGARD [Concomitant]
     Indication: BLOOD TESTOSTERONE ABNORMAL
     Dosage: UNK UNK, Q4MO
  2. XGEVA [Suspect]
     Indication: PROSTATE CANCER METASTATIC
     Dosage: UNK UNK, Q4WK
     Dates: start: 20110101
  3. TRAMADOL HCL [Concomitant]
     Indication: PAIN

REACTIONS (4)
  - FATIGUE [None]
  - MYALGIA [None]
  - MUSCULAR WEAKNESS [None]
  - PAIN [None]
